FAERS Safety Report 13480948 (Version 2)
Quarter: 2017Q2

REPORT INFORMATION
  Report Type: Spontaneous
  Country: US (occurrence: US)
  Receive Date: 20170425
  Receipt Date: 20170501
  Transmission Date: 20170830
  Serious: Yes (Other)
  Sender: FDA-Public Use
  Company Number: US-CELGENEUS-USA-20170407608

PATIENT
  Age: 73 Year
  Sex: Male

DRUGS (1)
  1. OTEZLA [Suspect]
     Active Substance: APREMILAST
     Indication: PSORIATIC ARTHROPATHY
     Dosage: 60 MILLIGRAM
     Route: 048
     Dates: start: 20170227

REACTIONS (10)
  - Claustrophobia [Unknown]
  - Suicidal ideation [Unknown]
  - Restlessness [Unknown]
  - Dyspnoea [Unknown]
  - Insomnia [Unknown]
  - Depression [Unknown]
  - Decreased appetite [Unknown]
  - Anxiety [Unknown]
  - Diarrhoea [Unknown]
  - Decreased interest [Unknown]

NARRATIVE: CASE EVENT DATE: 20170405
